FAERS Safety Report 8805835 (Version 1)
Quarter: 2012Q4

REPORT INFORMATION
  Report Type: Report from Study
  Country: US (occurrence: US)
  Receive Date: 20120925
  Receipt Date: 20120925
  Transmission Date: 20130627
  Serious: Yes (Hospitalization)
  Sender: FDA-Public Use
  Company Number: US-ABBOTT-12P-163-0981605-00

PATIENT
  Sex: Female

DRUGS (2)
  1. PRIMPRO [Concomitant]
     Indication: PRODUCT USED FOR UNKNOWN INDICATION
  2. HUMIRA [Suspect]
     Indication: CROHN^S DISEASE
     Dosage: every 2 weeks starting on day 30
     Dates: start: 201106

REACTIONS (1)
  - Cerebrovascular accident [Unknown]
